FAERS Safety Report 15595534 (Version 1)
Quarter: 2018Q4

REPORT INFORMATION
  Report Type: Spontaneous
  Country: US (occurrence: US)
  Receive Date: 20181107
  Receipt Date: 20181107
  Transmission Date: 20190205
  Serious: No
  Sender: FDA-Public Use
  Company Number: US-LUNDBECK-DKLU2056446

PATIENT
  Age: 80 Year
  Sex: Male

DRUGS (4)
  1. NORTHERA [Suspect]
     Active Substance: DROXIDOPA
     Dosage: 6 NORTHERA 300MG CAPSULES IN THE AM, AT NOON, AND 3 HOURS BEFORE BEDTIME.?OVERDOSE: 5400MG DROXIDOPA
     Route: 048
     Dates: start: 20181029
  2. NORTHERA [Suspect]
     Active Substance: DROXIDOPA
     Dosage: 6 NORTHERA 300MG CAPSULES IN THE AM, AT NOON, AND 3 HOURS BEFORE BEDTIME.?OVERDOSE: 5400MG DROXIDOPA
     Route: 048
     Dates: start: 20181029
  3. NORTHERA [Suspect]
     Active Substance: DROXIDOPA
     Indication: PARKINSON^S DISEASE
     Route: 048
     Dates: start: 20181029
  4. NORTHERA [Suspect]
     Active Substance: DROXIDOPA
     Dosage: 6 NORTHERA 300MG CAPSULES IN THE AM, AT NOON, AND 3 HOURS BEFORE BEDTIME.?OVERDOSE: 5400MG DROXIDOPA
     Route: 048
     Dates: start: 20181029

REACTIONS (1)
  - Accidental overdose [Unknown]

NARRATIVE: CASE EVENT DATE: 20181029
